FAERS Safety Report 5304882-0 (Version None)
Quarter: 2007Q2

REPORT INFORMATION
  Report Type: 
  Country: None (occurrence: None)
  Receive Date: 20070423
  Receipt Date: 20070411
  Transmission Date: 20071010
  Serious: Yes (Other)
  Sender: FDA-Public Use
  Company Number: US-PFIZER INC-2007030060

PATIENT
  Sex: Female
  Weight: 49.9 kg

DRUGS (5)
  1. LYRICA [Suspect]
     Indication: POST HERPETIC NEURALGIA
  2. INDERAL [Concomitant]
  3. PHOSPHOLINE IODIDE [Concomitant]
  4. PILOCARPINE [Concomitant]
  5. COSOPT [Concomitant]

REACTIONS (2)
  - HEART RATE INCREASED [None]
  - VISUAL ACUITY REDUCED [None]
